FAERS Safety Report 24923162 (Version 4)
Quarter: 2025Q4

REPORT INFORMATION
  Report Type: Report from Study
  Country: JP (occurrence: JP)
  Receive Date: 20250204
  Receipt Date: 20251006
  Transmission Date: 20260117
  Serious: Yes (Death, Other)
  Sender: ASTELLAS
  Company Number: JP-ASTELLAS-2025-AER-006135

PATIENT
  Age: 60 Year
  Sex: Male
  Weight: 118 kg

DRUGS (2)
  1. PADCEV [Suspect]
     Active Substance: ENFORTUMAB VEDOTIN-EJFV
     Indication: Ureteric cancer metastatic
     Dosage: 125MG (1.25MG/KG), ONCE WEEKLY, ADMINISTERED FOR 2 CONSECUTIVE WEEKS, INTERRUPTED IN THE 3RD WEEK
     Route: 042
     Dates: start: 20250108, end: 20250115
  2. KEYTRUDA [Suspect]
     Active Substance: PEMBROLIZUMAB
     Indication: Ureteric cancer metastatic
     Dosage: EVERY 3 WEEKS
     Route: 042
     Dates: start: 20250108, end: 202501

REACTIONS (4)
  - Cytokine release syndrome [Fatal]
  - Dermatitis bullous [Fatal]
  - Immune-mediated encephalitis [Fatal]
  - Febrile neutropenia [Fatal]

NARRATIVE: CASE EVENT DATE: 20250101
